FAERS Safety Report 11922358 (Version 1)
Quarter: 2016Q1

REPORT INFORMATION
  Report Type: Spontaneous
  Country: US (occurrence: US)
  Receive Date: 20160115
  Receipt Date: 20160115
  Transmission Date: 20160526
  Serious: Yes (Death)
  Sender: FDA-Public Use
  Company Number: US-PFIZER INC-2016009866

PATIENT
  Age: 75 Year

DRUGS (1)
  1. FRAGMIN [Suspect]
     Active Substance: DALTEPARIN SODIUM
     Indication: RENAL VASCULITIS
     Dosage: UNK UNK, DAILY
     Route: 058
     Dates: start: 20110307

REACTIONS (2)
  - Death [Fatal]
  - Product use issue [Unknown]
